FAERS Safety Report 20920306 (Version 1)
Quarter: 2022Q2

REPORT INFORMATION
  Report Type: Report from Study
  Country: US (occurrence: US)
  Receive Date: 20220606
  Receipt Date: 20220606
  Transmission Date: 20220721
  Serious: Yes (Death, Hospitalization, Other)
  Sender: FDA-Public Use
  Company Number: US-BRISTOL-MYERS SQUIBB COMPANY-2022-040454

PATIENT
  Age: 74 Year
  Sex: Male
  Weight: 72.1 kg

DRUGS (11)
  1. REVLIMID [Suspect]
     Active Substance: LENALIDOMIDE
     Indication: Plasma cell myeloma
     Dosage: FREQUENCY: 14 DAYS ON 7 DAYS OFF
     Route: 048
     Dates: start: 20130408, end: 20130715
  2. REVLIMID [Suspect]
     Active Substance: LENALIDOMIDE
     Dosage: FREQ: 28 DAYS (CONTINUOUS)
     Route: 048
     Dates: start: 20131226, end: 20180508
  3. POMALIDOMIDE [Suspect]
     Active Substance: POMALIDOMIDE
     Indication: Plasma cell myeloma
     Dosage: FREQUENCY: 5 DAYS PER WEEK
     Route: 048
     Dates: start: 20190107, end: 20210216
  4. POMALIDOMIDE [Suspect]
     Active Substance: POMALIDOMIDE
     Dosage: SCHEDULE: M-W-F
     Route: 048
     Dates: start: 20210217, end: 20210913
  5. DECADRON [Suspect]
     Active Substance: DEXAMETHASONE
     Indication: Plasma cell myeloma
     Route: 048
     Dates: start: 20130408, end: 20130715
  6. VELCADE [Suspect]
     Active Substance: BORTEZOMIB
     Indication: Plasma cell myeloma
     Dosage: SCHEDULE: 2X WEEKLY, DAYS 1 AND 4 Q 7D, 1 WEEK OFF Q 14 D
     Route: 058
     Dates: start: 20130408, end: 20130711
  7. ALKERAN [Suspect]
     Active Substance: MELPHALAN
     Indication: Plasma cell myeloma
     Dosage: FREQUENCY: DAYS -3 AND -2
     Route: 042
     Dates: start: 20130812, end: 20130813
  8. DARATUMUMAB [Suspect]
     Active Substance: DARATUMUMAB
     Indication: Plasma cell myeloma
     Route: 058
     Dates: start: 20210721, end: 20210929
  9. DARATUMUMAB [Suspect]
     Active Substance: DARATUMUMAB
     Dosage: ACTUALLY SC MONTHLY
     Route: 042
     Dates: start: 20210217
  10. FLUDARABINE [Concomitant]
     Active Substance: FLUDARABINE PHOSPHATE
     Dosage: DAILY X 5 DAYS
     Route: 042
     Dates: start: 20180922, end: 20180926
  11. BUSULFAN [Concomitant]
     Active Substance: BUSULFAN
     Dosage: DAILY X 2 DAYS
     Route: 042
     Dates: start: 20180924, end: 20180925

REACTIONS (2)
  - Sepsis [Not Recovered/Not Resolved]
  - Death [Fatal]

NARRATIVE: CASE EVENT DATE: 20220217
